FAERS Safety Report 7834178-4 (Version None)
Quarter: 2011Q4

REPORT INFORMATION
  Report Type: 
  Country: None (occurrence: None)
  Receive Date: 20111024
  Receipt Date: 20111013
  Transmission Date: 20120403
  Serious: Yes (Hospitalization)
  Sender: FDA-Public Use
  Company Number: PHFR2011GB04593

PATIENT
  Sex: Female

DRUGS (5)
  1. CLOZARIL [Suspect]
     Indication: SCHIZOPHRENIA, PARANOID TYPE
     Dosage: 75 MG MORNING + 400 MG NIGHT
     Route: 048
     Dates: start: 20081104
  2. RIVASTIGMINE [Concomitant]
     Indication: HALLUCINATION, VISUAL
     Dosage: 4.6 MG/DAY
     Route: 048
  3. VALPROATE SODIUM [Concomitant]
     Dosage: 2000 MG/DAY
     Route: 048
  4. MEFENAMIC ACID [Concomitant]
     Dosage: 500 MG, TID
     Route: 048
  5. HYOSCINE HYDROBROMIDE [Concomitant]
     Indication: SALIVARY HYPERSECRETION
     Dosage: 300 UG, BID
     Route: 048

REACTIONS (9)
  - ELECTROCARDIOGRAM T WAVE INVERSION [None]
  - SALIVARY HYPERSECRETION [None]
  - HYPOTENSION [None]
  - OEDEMA PERIPHERAL [None]
  - OBSTRUCTION [None]
  - DIASTOLIC DYSFUNCTION [None]
  - OEDEMA [None]
  - CARDIOMYOPATHY [None]
  - HIATUS HERNIA [None]
